FAERS Safety Report 13768862 (Version 2)
Quarter: 2017Q3

REPORT INFORMATION
  Report Type: Report from Study
  Country: US (occurrence: US)
  Receive Date: 20170719
  Receipt Date: 20170922
  Transmission Date: 20171127
  Serious: Yes (Death, Other)
  Sender: FDA-Public Use
  Company Number: PHEH2017US022079

PATIENT
  Age: 32 Year
  Sex: Female
  Weight: 81.2 kg

DRUGS (10)
  1. TRILEPTAL [Suspect]
     Active Substance: OXCARBAZEPINE
     Indication: HYPOAESTHESIA
  2. WELLBUTRIN [Concomitant]
     Active Substance: BUPROPION HYDROCHLORIDE
     Indication: DEPRESSION
     Dosage: 100 MG, BID
     Route: 065
  3. TRILEPTAL [Suspect]
     Active Substance: OXCARBAZEPINE
     Indication: BURNING SENSATION
  4. XANAX [Concomitant]
     Active Substance: ALPRAZOLAM
     Indication: PRODUCT USED FOR UNKNOWN INDICATION
     Dosage: 0.5 MG, UNK
     Route: 065
  5. IMPLANON [Concomitant]
     Active Substance: ETONOGESTREL
     Indication: PRODUCT USED FOR UNKNOWN INDICATION
     Dosage: 68 MG, UNK
     Route: 065
  6. PROVERA [Concomitant]
     Active Substance: MEDROXYPROGESTERONE ACETATE
     Indication: PRODUCT USED FOR UNKNOWN INDICATION
     Route: 065
  7. WELLBUTRIN [Concomitant]
     Active Substance: BUPROPION HYDROCHLORIDE
     Indication: ANXIETY
  8. GILENYA [Suspect]
     Active Substance: FINGOLIMOD HYDROCHLORIDE
     Indication: MULTIPLE SCLEROSIS
     Dosage: 0.5 MG, QD
     Route: 048
     Dates: start: 20110420, end: 2013
  9. TRILEPTAL [Suspect]
     Active Substance: OXCARBAZEPINE
     Indication: PARAESTHESIA
     Dosage: 300 MG, BID
     Route: 065
  10. DEPAKOTE [Concomitant]
     Active Substance: DIVALPROEX SODIUM
     Indication: PRODUCT USED FOR UNKNOWN INDICATION
     Route: 065

REACTIONS (28)
  - Photophobia [Unknown]
  - Completed suicide [Fatal]
  - Pain [Recovering/Resolving]
  - Arthritis [Unknown]
  - Acne [Unknown]
  - Upper respiratory tract infection [Unknown]
  - Muscle twitching [Unknown]
  - Cognitive disorder [Unknown]
  - Pain [Unknown]
  - Staphylococcal infection [Unknown]
  - Anxiety [Recovering/Resolving]
  - Neuralgia [Unknown]
  - Blood pressure decreased [Unknown]
  - Tremor [Unknown]
  - Eye pain [Unknown]
  - Dysaesthesia [Recovering/Resolving]
  - Menstruation irregular [Unknown]
  - Bronchitis [Unknown]
  - Cough [Unknown]
  - Multiple sclerosis relapse [Recovering/Resolving]
  - CD4 lymphocytes decreased [Unknown]
  - Paraesthesia [Recovering/Resolving]
  - Fatigue [Unknown]
  - Hypoaesthesia [Unknown]
  - Sensory loss [Unknown]
  - Body mass index increased [Unknown]
  - Migraine [Unknown]
  - Headache [Unknown]

NARRATIVE: CASE EVENT DATE: 20170106
